FAERS Safety Report 5293544-4 (Version None)
Quarter: 2007Q2

REPORT INFORMATION
  Report Type: 
  Country: None (occurrence: None)
  Receive Date: 20070411
  Receipt Date: 20070410
  Transmission Date: 20071010
  Serious: Yes (Hospitalization)
  Sender: FDA-Public Use
  Company Number: DE-GLAXOSMITHKLINE-D0052079A

PATIENT
  Age: 76 Year
  Sex: Female
  Weight: 78 kg

DRUGS (6)
  1. QUILONUM [Suspect]
     Dosage: 536MG SEE DOSAGE TEXT
     Route: 048
     Dates: start: 20070118, end: 20070118
  2. ASPIRIN [Suspect]
     Dosage: 100MG SEE DOSAGE TEXT
     Route: 048
     Dates: start: 20070118, end: 20070118
  3. ERGENYL [Suspect]
     Route: 048
     Dates: start: 20070118, end: 20070118
  4. L-THYROXIN [Suspect]
     Route: 048
     Dates: start: 20070118, end: 20070118
  5. OXYBUTININE CHLORHYDRATE [Suspect]
     Route: 048
     Dates: start: 20070118, end: 20070118
  6. ZOPICLON [Suspect]
     Route: 048
     Dates: start: 20070118, end: 20070118

REACTIONS (2)
  - SOMNOLENCE [None]
  - SUICIDE ATTEMPT [None]
